FAERS Safety Report 8604226-2 (Version None)
Quarter: 2012Q3

REPORT INFORMATION
  Report Type: 
  Country: None (occurrence: None)
  Receive Date: 20120820
  Receipt Date: 20120816
  Transmission Date: 20120928
  Serious: Yes (Other)
  Sender: FDA-Public Use
  Company Number: US-PFIZER INC-2012202186

PATIENT
  Age: 42 Year
  Sex: Female
  Weight: 48.98 kg

DRUGS (3)
  1. CHANTIX [Suspect]
     Indication: SMOKING CESSATION THERAPY
     Dosage: UNK
     Route: 048
  2. HYDROCODONE [Concomitant]
     Indication: PAIN
     Dosage: 10 MG, AS NEEDED
  3. ESTRADIOL [Concomitant]
     Indication: MENOPAUSE
     Dosage: UNK

REACTIONS (5)
  - CONFUSIONAL STATE [None]
  - NAUSEA [None]
  - STRESS [None]
  - DEPRESSION [None]
  - FLATULENCE [None]
